FAERS Safety Report 18597351 (Version 1)
Quarter: 2020Q4

REPORT INFORMATION
  Report Type: Spontaneous
  Country: US (occurrence: US)
  Receive Date: 20201209
  Receipt Date: 20201209
  Transmission Date: 20210114
  Serious: No
  Sender: FDA-Public Use
  Company Number: US-IBSA PHARMA INC.-2019IBS000176

PATIENT
  Age: 51 Year
  Sex: Female

DRUGS (5)
  1. TIROSINT [Suspect]
     Active Substance: LEVOTHYROXINE SODIUM
     Indication: HYPOTHYROIDISM
     Dosage: 100MCG
     Route: 048
     Dates: start: 2019, end: 2019
  2. TIROSINT [Suspect]
     Active Substance: LEVOTHYROXINE SODIUM
     Indication: HYPOTHYROIDISM
     Dosage: 112MCG
     Route: 048
     Dates: start: 2019, end: 2019
  3. ALIMTA [Suspect]
     Active Substance: PEMETREXED DISODIUM
     Indication: LUNG NEOPLASM MALIGNANT
  4. TIROSINT [Suspect]
     Active Substance: LEVOTHYROXINE SODIUM
     Indication: HYPOTHYROIDISM
     Dosage: 175MCG
     Route: 048
     Dates: start: 201903
  5. TIROSINT [Suspect]
     Active Substance: LEVOTHYROXINE SODIUM
     Indication: HYPOTHYROIDISM
     Dosage: 88MCG ONCE DAILY
     Route: 048

REACTIONS (6)
  - Constipation [Unknown]
  - Dry skin [Unknown]
  - Drug interaction [Unknown]
  - Malabsorption [Unknown]
  - Drug level above therapeutic [Unknown]
  - Weight increased [Unknown]

NARRATIVE: CASE EVENT DATE: 2019
